FAERS Safety Report 5487076-8 (Version None)
Quarter: 2007Q4

REPORT INFORMATION
  Report Type: 
  Country: None (occurrence: None)
  Receive Date: 20071016
  Receipt Date: 20071012
  Transmission Date: 20080405
  Serious: Yes (Death, Hospitalization)
  Sender: FDA-Public Use
  Company Number: PHBS2007TW06436

PATIENT
  Age: 75 Year
  Sex: Female
  Weight: 60 kg

DRUGS (1)
  1. DIOVAN HCT [Suspect]
     Indication: HYPERTENSION
     Route: 048
     Dates: start: 20061031

REACTIONS (5)
  - CARDIAC ARREST [None]
  - CARDIAC FAILURE [None]
  - HYPOKALAEMIA [None]
  - HYPOTENSION [None]
  - SKIN DISCOLOURATION [None]
